FAERS Safety Report 21479882 (Version 1)
Quarter: 2022Q4

REPORT INFORMATION
  Report Type: Spontaneous
  Country: EG (occurrence: EG)
  Receive Date: 20221019
  Receipt Date: 20221019
  Transmission Date: 20230113
  Serious: Yes (Other)
  Sender: FDA-Public Use
  Company Number: EG-MYLANLABS-2022M1115916

PATIENT
  Age: 43 Year
  Sex: Male

DRUGS (9)
  1. FLUOROURACIL [Suspect]
     Active Substance: FLUOROURACIL
     Indication: Adenocarcinoma of colon
     Dosage: UNK, CYCLE (RECEIVED 6 CYCLES OF ADJUVANT DE GRAMONT REGIMEN)
     Route: 065
  2. CISPLATIN [Suspect]
     Active Substance: CISPLATIN
     Indication: Follicular lymphoma
     Dosage: UNK, CYCLE (RECEIVED 4 CYCLES OF DHAP PROTOCOL)
     Route: 065
  3. CYCLOPHOSPHAMIDE [Suspect]
     Active Substance: CYCLOPHOSPHAMIDE
     Indication: Diffuse large B-cell lymphoma
     Dosage: UNK UNK, CYCLE (RECEIVED 8 CYCLES OF CHOP PROTOCOL)
     Route: 065
  4. DOXORUBICIN [Suspect]
     Active Substance: DOXORUBICIN
     Indication: Diffuse large B-cell lymphoma
     Dosage: UNK UNK, CYCLE (RECEIVED 8 CYCLES OF CHOP PROTOCOL)
     Route: 065
  5. VINCRISTINE [Suspect]
     Active Substance: VINCRISTINE
     Indication: Diffuse large B-cell lymphoma
     Dosage: UNK UNK, CYCLE (RECEIVED 8 CYCLES OF CHOP PROTOCOL)
     Route: 065
  6. PREDNISONE [Suspect]
     Active Substance: PREDNISONE
     Indication: Diffuse large B-cell lymphoma
     Dosage: UNK UNK, CYCLE (RECEIVED 8 CYCLES OF CHOP PROTOCOL)
     Route: 065
  7. LEUCOVORIN [Suspect]
     Active Substance: LEUCOVORIN
     Indication: Adenocarcinoma of colon
     Dosage: UNK
     Route: 065
  8. CYTARABINE [Suspect]
     Active Substance: CYTARABINE
     Indication: Follicular lymphoma
     Dosage: UNK, CYCLE (RECEIVED 4 CYCLES OF DHAP PROTOCOL)
     Route: 065
  9. DEXAMETHASONE [Suspect]
     Active Substance: DEXAMETHASONE
     Indication: Follicular lymphoma
     Dosage: UNK UNK, CYCLE (RECEIVED 4 CYCLES OF DHAP PROTOCOL)
     Route: 065

REACTIONS (1)
  - Second primary malignancy [Unknown]
